FAERS Safety Report 13988171 (Version 3)
Quarter: 2017Q4

REPORT INFORMATION
  Report Type: Spontaneous
  Country: FR (occurrence: FR)
  Receive Date: 20170919
  Receipt Date: 20171027
  Transmission Date: 20180321
  Serious: Yes (Other)
  Sender: FDA-Public Use
  Company Number: FR-AMGEN-FRASP2017139586

PATIENT
  Age: 74 Year
  Sex: Male
  Weight: 70 kg

DRUGS (1)
  1. ARANESP [Suspect]
     Active Substance: DARBEPOETIN ALFA
     Indication: HAEMOGLOBIN ABNORMAL
     Dosage: 150 MUG, QWK
     Route: 030
     Dates: start: 20140602

REACTIONS (2)
  - Incorrect route of drug administration [Unknown]
  - Platelet morphology abnormal [Unknown]

NARRATIVE: CASE EVENT DATE: 20140602
